FAERS Safety Report 18651456 (Version 1)
Quarter: 2020Q4

REPORT INFORMATION
  Report Type: Spontaneous
  Country: US (occurrence: US)
  Receive Date: 20201223
  Receipt Date: 20201223
  Transmission Date: 20210114
  Serious: No
  Sender: FDA-Public Use
  Company Number: US-GILEAD-2020-0510254

PATIENT
  Sex: Male

DRUGS (2)
  1. AMLODIPINE BESILATE [Concomitant]
     Active Substance: AMLODIPINE BESYLATE
  2. TRUVADA [Suspect]
     Active Substance: EMTRICITABINE\TENOFOVIR DISOPROXIL FUMARATE
     Indication: EXPOSURE TO COMMUNICABLE DISEASE
     Dosage: 1 DOSAGE FORM, QD
     Route: 048

REACTIONS (2)
  - Product dose omission issue [Unknown]
  - Off label use [Not Recovered/Not Resolved]
